FAERS Safety Report 10016630 (Version 2)
Quarter: 2014Q1

REPORT INFORMATION
  Report Type: Spontaneous
  Country: US (occurrence: US)
  Receive Date: 20140317
  Receipt Date: 20140317
  Transmission Date: 20141002
  Serious: No
  Sender: FDA-Public Use
  Company Number: US-ALLERGAN-1212678US

PATIENT
  Age: 75 Year
  Sex: Female

DRUGS (5)
  1. FML [Suspect]
     Indication: EYE DISCHARGE
     Dosage: 2 DROPS PER EYE, ONE TIME
     Route: 047
     Dates: start: 20120814, end: 20120814
  2. FML [Suspect]
     Indication: EYE INFECTION
  3. KLONOPIN [Concomitant]
     Indication: PRODUCT USED FOR UNKNOWN INDICATION
     Dosage: .5 MG, UNK
     Route: 048
  4. SYSTANE [Concomitant]
     Indication: PRODUCT USED FOR UNKNOWN INDICATION
  5. SYSTANE ULTRA [Concomitant]
     Indication: PRODUCT USED FOR UNKNOWN INDICATION

REACTIONS (8)
  - Ageusia [Recovered/Resolved]
  - Epistaxis [Unknown]
  - Visual acuity reduced [Not Recovered/Not Resolved]
  - Pruritus [Not Recovered/Not Resolved]
  - Nasal inflammation [Unknown]
  - Eye inflammation [Unknown]
  - Eye discharge [Not Recovered/Not Resolved]
  - Eye discharge [Unknown]
